FAERS Safety Report 5828837-2 (Version None)
Quarter: 2008Q3

REPORT INFORMATION
  Report Type: 
  Country: None (occurrence: None)
  Receive Date: 20080729
  Receipt Date: 20080729
  Transmission Date: 20090109
  Serious: Yes (Hospitalization)
  Sender: FDA-Public Use
  Company Number: None

PATIENT
  Age: 87 Year
  Sex: Male
  Weight: 149.11 kg

DRUGS (2)
  1. SIMVASTATIN [Suspect]
     Dosage: 40 MG EVERY DAY PO
     Route: 048
     Dates: start: 20080224, end: 20080427
  2. CYCLOSPORINE [Suspect]
     Dosage: 150 MG BID PO
     Route: 048
     Dates: start: 20080110, end: 20080427

REACTIONS (1)
  - RHABDOMYOLYSIS [None]
